FAERS Safety Report 9722844 (Version 1)
Quarter: 2013Q4

REPORT INFORMATION
  Report Type: Spontaneous
  Country: US (occurrence: None)
  Receive Date: 20131127
  Receipt Date: 20131127
  Transmission Date: 20140711
  Serious: Yes (Hospitalization)
  Sender: FDA-Public Use
  Company Number: None

PATIENT
  Age: 47 Year
  Sex: Female
  Weight: 55.8 kg

DRUGS (3)
  1. BEVACIZUMAB [Suspect]
  2. IRINOTECAN [Suspect]
  3. OXALIPLATIN [Suspect]

REACTIONS (2)
  - Fatigue [None]
  - Activities of daily living impaired [None]
